FAERS Safety Report 11500388 (Version 1)
Quarter: 2015Q3

REPORT INFORMATION
  Report Type: Spontaneous
  Country: US (occurrence: US)
  Receive Date: 20150914
  Receipt Date: 20150914
  Transmission Date: 20151125
  Serious: No
  Sender: FDA-Public Use
  Company Number: US-BIOGENIDEC-2015BI124652

PATIENT
  Age: 39 Year
  Sex: Female

DRUGS (1)
  1. TECFIDERA [Suspect]
     Active Substance: DIMETHYL FUMARATE
     Indication: PRODUCT USED FOR UNKNOWN INDICATION
     Route: 048

REACTIONS (6)
  - Stomatitis [Unknown]
  - Oral mucosal erythema [Unknown]
  - Oral discomfort [Unknown]
  - Pain [Unknown]
  - Palatal swelling [Unknown]
  - Nausea [Unknown]

NARRATIVE: CASE EVENT DATE: 20150901
